FAERS Safety Report 8232381-5 (Version None)
Quarter: 2012Q1

REPORT INFORMATION
  Report Type: 
  Country: None (occurrence: None)
  Receive Date: 20120323
  Receipt Date: 20120312
  Transmission Date: 20120608
  Serious: Yes (Other)
  Sender: FDA-Public Use
  Company Number: RU-GLAXOSMITHKLINE-B0788302A

PATIENT
  Sex: Female

DRUGS (2)
  1. SULPIRIDE [Concomitant]
     Indication: DEPRESSION
     Dosage: 200MG PER DAY
     Route: 048
     Dates: start: 20120213
  2. PAXIL [Suspect]
     Indication: DEPRESSION
     Dosage: 10MG PER DAY
     Route: 048
     Dates: start: 20120213, end: 20120310

REACTIONS (11)
  - RASH [None]
  - SOMNOLENCE [None]
  - RASH MACULAR [None]
  - DRUG INEFFECTIVE [None]
  - APATHY [None]
  - DYSPNOEA [None]
  - ANGIOEDEMA [None]
  - FACE OEDEMA [None]
  - BLOOD PRESSURE INCREASED [None]
  - DIZZINESS [None]
  - HYPERHIDROSIS [None]
